FAERS Safety Report 10199184 (Version 2)
Quarter: 2014Q2

REPORT INFORMATION
  Report Type: Spontaneous
  Country: US (occurrence: US)
  Receive Date: 20140527
  Receipt Date: 20140604
  Transmission Date: 20141212
  Serious: No
  Sender: FDA-Public Use
  Company Number: US-BAXTER-2014BAX025448

PATIENT
  Sex: Male

DRUGS (4)
  1. DIANEAL LOW CALCIUM [Suspect]
     Indication: RENAL FAILURE CHRONIC
     Route: 033
     Dates: start: 201402
  2. DIANEAL LOW CALCIUM [Suspect]
     Route: 033
     Dates: start: 201402
  3. DIANEAL LOW CALCIUM [Suspect]
     Indication: RENAL FAILURE CHRONIC
     Route: 033
     Dates: start: 201402
  4. DIANEAL LOW CALCIUM [Suspect]
     Route: 033
     Dates: start: 201402

REACTIONS (3)
  - Peripheral swelling [Recovering/Resolving]
  - Weight increased [Recovering/Resolving]
  - Dizziness [Recovered/Resolved]
